FAERS Safety Report 6818855-X (Version None)
Quarter: 2010Q3

REPORT INFORMATION
  Report Type: 
  Country: None (occurrence: None)
  Receive Date: 20100706
  Receipt Date: 20100625
  Transmission Date: 20110219
  Serious: Yes (Other)
  Sender: FDA-Public Use
  Company Number: CO-BRISTOL-MYERS SQUIBB COMPANY-15167083

PATIENT
  Age: 30 Year
  Sex: Male

DRUGS (1)
  1. SPRYCEL [Suspect]

REACTIONS (2)
  - INTRACRANIAL PRESSURE INCREASED [None]
  - TONGUE OEDEMA [None]
